FAERS Safety Report 6190783-5 (Version None)
Quarter: 2009Q2

REPORT INFORMATION
  Report Type: 
  Country: None (occurrence: None)
  Receive Date: 20090514
  Receipt Date: 20090508
  Transmission Date: 20091009
  Serious: Yes (Hospitalization, Other)
  Sender: FDA-Public Use
  Company Number: US-ELI_LILLY_AND_COMPANY-US200905001571

PATIENT
  Sex: Female

DRUGS (3)
  1. HUMALOG [Suspect]
     Dates: start: 20010101
  2. LEVEMIR [Concomitant]
  3. JANUMET [Concomitant]

REACTIONS (13)
  - ASTHENIA [None]
  - BLOOD GLUCOSE DECREASED [None]
  - BLOOD GLUCOSE INCREASED [None]
  - CARDIAC PACEMAKER INSERTION [None]
  - DYSARTHRIA [None]
  - HEART RATE DECREASED [None]
  - INCISION SITE COMPLICATION [None]
  - INSOMNIA [None]
  - KIDNEY INFECTION [None]
  - PROCEDURAL PAIN [None]
  - SLEEP APNOEA SYNDROME [None]
  - SOMNOLENCE [None]
  - VISUAL IMPAIRMENT [None]
